FAERS Safety Report 5861942-3 (Version None)
Quarter: 2008Q3

REPORT INFORMATION
  Report Type: 
  Country: None (occurrence: None)
  Receive Date: 20080827
  Receipt Date: 20080723
  Transmission Date: 20090109
  Serious: No
  Sender: FDA-Public Use
  Company Number: US-ABBOTT-08P-163-0465328-00

PATIENT
  Sex: Male
  Weight: 99.88 kg

DRUGS (9)
  1. NIASPAN [Suspect]
     Indication: LOW DENSITY LIPOPROTEIN INCREASED
     Route: 048
     Dates: start: 20080623
  2. NIASPAN [Suspect]
     Indication: HIGH DENSITY LIPOPROTEIN DECREASED
  3. GLIMEPIRIDE [Concomitant]
     Indication: BLOOD GLUCOSE ABNORMAL
     Route: 048
     Dates: start: 20030101
  4. METFORMIN HCL [Concomitant]
     Indication: BLOOD GLUCOSE ABNORMAL
     Route: 048
     Dates: start: 20030101
  5. METOPROLOL TARTRATE [Concomitant]
     Indication: BLOOD PRESSURE MANAGEMENT
     Route: 048
     Dates: start: 20050101
  6. OLMESARTAN MEDOXOMIL [Concomitant]
     Indication: BLOOD PRESSURE MANAGEMENT
     Route: 048
     Dates: start: 20050101
  7. ATORVASTATIN CALCIUM [Concomitant]
     Indication: BLOOD CHOLESTEROL
     Route: 048
     Dates: start: 20030101
  8. WARFARIN SODIUM [Concomitant]
     Indication: CEREBROVASCULAR ACCIDENT
     Route: 048
     Dates: start: 20030101
  9. TIMOLOL [Concomitant]
     Indication: GLAUCOMA
     Dosage: EACH EYE
     Route: 061
     Dates: start: 20000101

REACTIONS (1)
  - BLOOD GLUCOSE INCREASED [None]
